FAERS Safety Report 17687195 (Version 2)
Quarter: 2020Q2

REPORT INFORMATION
  Report Type: Spontaneous
  Country: TH (occurrence: TH)
  Receive Date: 20200421
  Receipt Date: 20200429
  Transmission Date: 20200714
  Serious: Yes (Other)
  Sender: FDA-Public Use
  Company Number: TH-ROCHE-2581494

PATIENT
  Age: 38 Year
  Sex: Male
  Weight: 85 kg

DRUGS (4)
  1. TAMIFLU [Suspect]
     Active Substance: OSELTAMIVIR PHOSPHATE
     Indication: CORONAVIRUS INFECTION
     Route: 048
     Dates: start: 20200403
  2. CHLOROQUINE. [Suspect]
     Active Substance: CHLOROQUINE
     Indication: CORONAVIRUS INFECTION
     Route: 048
     Dates: start: 20200402
  3. AZITHROMYCIN ANHYDROUS. [Suspect]
     Active Substance: AZITHROMYCIN ANHYDROUS
     Indication: CORONAVIRUS INFECTION
     Route: 048
     Dates: start: 20200402
  4. ACTEMRA [Suspect]
     Active Substance: TOCILIZUMAB
     Indication: CORONAVIRUS INFECTION
     Route: 042
     Dates: start: 20200406, end: 20200406

REACTIONS (3)
  - Product use in unapproved indication [Unknown]
  - Pneumonitis [Unknown]
  - Off label use [Unknown]
